FAERS Safety Report 11321633 (Version 1)
Quarter: 2015Q3

REPORT INFORMATION
  Report Type: Spontaneous
  Country: IT (occurrence: IT)
  Receive Date: 20150729
  Receipt Date: 20150729
  Transmission Date: 20151125
  Serious: Yes (Hospitalization)
  Sender: FDA-Public Use
  Company Number: IT-BAYER-2015-389502

PATIENT
  Age: 74 Year
  Sex: Male

DRUGS (7)
  1. ATORVASTATIN [Concomitant]
     Active Substance: ATORVASTATIN
     Dosage: DAILY DOSE 40 MG
     Route: 048
  2. NEBIVOLOL. [Concomitant]
     Active Substance: NEBIVOLOL
     Dosage: DAILY DOSE 5 MG
     Route: 048
  3. VALSARTAN AND HYDROCHLOROTHIAZIDE [Concomitant]
     Active Substance: HYDROCHLOROTHIAZIDE\VALSARTAN
  4. PLAVIX [Suspect]
     Active Substance: CLOPIDOGREL BISULFATE
     Indication: PROPHYLAXIS
     Dosage: DAILY DOSE 75MG
     Route: 048
     Dates: start: 20140806, end: 20150716
  5. LANSOX [Concomitant]
     Active Substance: LANSOPRAZOLE
  6. SOLOSA [Concomitant]
     Active Substance: GLIMEPIRIDE
  7. CARDIOASPIRIN [Suspect]
     Active Substance: ASPIRIN
     Indication: PROPHYLAXIS
     Dosage: DAILY DOSE 100 MG
     Route: 048
     Dates: start: 20140806, end: 20150716

REACTIONS (1)
  - Haematuria [Recovering/Resolving]

NARRATIVE: CASE EVENT DATE: 20150715
